FAERS Safety Report 25345936 (Version 1)
Quarter: 2025Q2

REPORT INFORMATION
  Report Type: Spontaneous
  Country: KR (occurrence: KR)
  Receive Date: 20250522
  Receipt Date: 20250522
  Transmission Date: 20250716
  Serious: Yes (Other)
  Sender: BEIGENE
  Company Number: KR-BEIGENE-BGN-2025-007652

PATIENT

DRUGS (12)
  1. BRUKINSA [Suspect]
     Active Substance: ZANUBRUTINIB
     Indication: Chronic lymphocytic leukaemia
     Route: 065
  2. BRUKINSA [Suspect]
     Active Substance: ZANUBRUTINIB
     Route: 065
  3. BRUKINSA [Suspect]
     Active Substance: ZANUBRUTINIB
     Route: 065
  4. BRUKINSA [Suspect]
     Active Substance: ZANUBRUTINIB
     Route: 065
  5. BRUKINSA [Suspect]
     Active Substance: ZANUBRUTINIB
     Route: 065
  6. BRUKINSA [Suspect]
     Active Substance: ZANUBRUTINIB
     Route: 065
  7. BRUKINSA [Suspect]
     Active Substance: ZANUBRUTINIB
     Route: 065
  8. BRUKINSA [Suspect]
     Active Substance: ZANUBRUTINIB
     Route: 065
  9. BRUKINSA [Suspect]
     Active Substance: ZANUBRUTINIB
     Route: 065
  10. BRUKINSA [Suspect]
     Active Substance: ZANUBRUTINIB
     Route: 065
  11. BRUKINSA [Suspect]
     Active Substance: ZANUBRUTINIB
     Route: 065
  12. BRUKINSA [Suspect]
     Active Substance: ZANUBRUTINIB
     Route: 065

REACTIONS (6)
  - Waldenstrom^s macroglobulinaemia [Unknown]
  - Blood immunoglobulin M increased [Unknown]
  - Immunoglobulins abnormal [Unknown]
  - Mucosal haemorrhage [Unknown]
  - Mouth haemorrhage [Unknown]
  - Contusion [Unknown]
